FAERS Safety Report 10457200 (Version 2)
Quarter: 2014Q3

REPORT INFORMATION
  Report Type: Spontaneous
  Country: US (occurrence: US)
  Receive Date: 20140916
  Receipt Date: 20140923
  Transmission Date: 20150326
  Serious: No
  Sender: FDA-Public Use
  Company Number: US-009507513-1409USA005699

PATIENT
  Age: 16 Year
  Sex: Female
  Weight: 58.96 kg

DRUGS (1)
  1. NEXPLANON [Suspect]
     Active Substance: ETONOGESTREL
     Indication: CONTRACEPTION
     Dosage: 1 ROD FOR 3 YEARS, SUBDERMALLY IN UPPER LEFT ARM
     Route: 059
     Dates: start: 20140401

REACTIONS (2)
  - Menorrhagia [Unknown]
  - Vaginal infection [Unknown]

NARRATIVE: CASE EVENT DATE: 20140820
